FAERS Safety Report 26053017 (Version 2)
Quarter: 2025Q4

REPORT INFORMATION
  Report Type: Spontaneous
  Country: JP (occurrence: JP)
  Receive Date: 20251117
  Receipt Date: 20251128
  Transmission Date: 20260118
  Serious: Yes (Hospitalization)
  Sender: SUNOVION
  Company Number: JP-SUNOVION-2025SPA015272

PATIENT
  Age: 29 Year
  Sex: Female

DRUGS (4)
  1. RELUGOLIX [Suspect]
     Active Substance: RELUGOLIX
     Indication: Anovulatory cycle
     Dosage: 40 MG
     Route: 048
     Dates: start: 20250118, end: 20250122
  2. GONADOTROPHIN, CHORIONIC [Suspect]
     Active Substance: GONADOTROPHIN, CHORIONIC
     Indication: Ovulation induction
     Dosage: 150 IU
     Route: 058
     Dates: start: 20250121, end: 20250121
  3. FOLLITROPIN ALFA [Suspect]
     Active Substance: FOLLITROPIN ALFA
     Indication: Ovulation induction
     Dosage: 225 IU
     Route: 062
     Dates: start: 20250111, end: 20250114
  4. FOLLITROPIN ALFA [Suspect]
     Active Substance: FOLLITROPIN ALFA
     Dosage: 150 IU
     Route: 062
     Dates: start: 20250115, end: 20250120

REACTIONS (2)
  - Ovarian hyperstimulation syndrome [Recovered/Resolved]
  - Off label use [Unknown]

NARRATIVE: CASE EVENT DATE: 20250118
